FAERS Safety Report 20731301 (Version 2)
Quarter: 2022Q2

REPORT INFORMATION
  Report Type: Other
  Country: CZ (occurrence: CZ)
  Receive Date: 20220420
  Receipt Date: 20220429
  Transmission Date: 20220721
  Serious: Yes (Other)
  Sender: FDA-Public Use
  Company Number: None

PATIENT
  Age: 68 Year
  Sex: Female

DRUGS (12)
  1. LONSURF [Suspect]
     Active Substance: TIPIRACIL HYDROCHLORIDE\TRIFLURIDINE
     Indication: Rectosigmoid cancer metastatic
     Dosage: 70 MG (35 MG/M2), BID
     Route: 048
     Dates: start: 201810
  2. LONSURF [Suspect]
     Active Substance: TIPIRACIL HYDROCHLORIDE\TRIFLURIDINE
     Dosage: 60 MG (30 MG/M2), BID
     Route: 048
     Dates: start: 2018
  3. LONSURF [Suspect]
     Active Substance: TIPIRACIL HYDROCHLORIDE\TRIFLURIDINE
     Dosage: 50 MG (25 MG/M2), BID
     Route: 048
     Dates: start: 2019
  4. FLUOROURACIL [Concomitant]
     Active Substance: FLUOROURACIL
     Indication: Rectosigmoid cancer metastatic
     Dosage: FOLFIRI REGIMEN
     Route: 065
     Dates: start: 201709
  5. FLUOROURACIL [Concomitant]
     Active Substance: FLUOROURACIL
     Dosage: FUFA REGIMEN, RECEIVED 3 CYCLES
     Route: 065
     Dates: start: 201704
  6. FLUOROURACIL [Concomitant]
     Active Substance: FLUOROURACIL
     Dosage: FOLFOX REGIMEN; RECEIVED 9 CYCLES
     Route: 065
     Dates: start: 201609
  7. LEUCOVORIN [Concomitant]
     Active Substance: LEUCOVORIN
     Indication: Rectosigmoid cancer metastatic
     Dosage: FOLFIRI REGIMEN
     Route: 065
     Dates: start: 201709
  8. LEUCOVORIN [Concomitant]
     Active Substance: LEUCOVORIN
     Dosage: FUFA REGIMEN, RECEIVED 3 CYCLES
     Route: 065
     Dates: start: 201704
  9. LEUCOVORIN [Concomitant]
     Active Substance: LEUCOVORIN
     Dosage: FOLFOX REGIMEN; RECEIVED 9 CYCLES
     Route: 065
     Dates: start: 201609
  10. IRINOTECAN [Concomitant]
     Active Substance: IRINOTECAN
     Indication: Rectosigmoid cancer metastatic
     Dosage: FOLFIRI REGIMEN
     Route: 065
     Dates: start: 201709
  11. OXALIPLATIN [Concomitant]
     Active Substance: OXALIPLATIN
     Indication: Rectosigmoid cancer metastatic
     Dosage: FOLFOX REGIMEN; RECEIVED 9 CYCLES
     Route: 065
     Dates: start: 201609
  12. BEVACIZUMAB [Concomitant]
     Active Substance: BEVACIZUMAB
     Indication: Rectosigmoid cancer metastatic
     Dosage: UNK
     Route: 065
     Dates: start: 201709

REACTIONS (8)
  - Nausea [Unknown]
  - Thrombocytopenia [Unknown]
  - Neutropenia [Unknown]
  - Decreased appetite [Unknown]
  - Fatigue [Unknown]
  - Malaise [Unknown]
  - Anaemia [Unknown]
  - Neuropathy peripheral [Unknown]

NARRATIVE: CASE EVENT DATE: 20181001
